FAERS Safety Report 10074217 (Version 1)
Quarter: 2014Q2

REPORT INFORMATION
  Report Type: Spontaneous
  Country: US (occurrence: US)
  Receive Date: 20140411
  Receipt Date: 20140411
  Transmission Date: 20141212
  Serious: No
  Sender: FDA-Public Use
  Company Number: US-SANOFI-AVENTIS-2013SA033365

PATIENT
  Age: 33 Year
  Sex: Female

DRUGS (4)
  1. ALLEGRA D [Suspect]
     Indication: SINUS HEADACHE
     Dates: start: 201303
  2. ALLEGRA D [Suspect]
     Indication: PARANASAL SINUS DISCOMFORT
     Dates: start: 201303
  3. ALL OTHER THERAPEUTIC PRODUCTS [Concomitant]
     Dates: start: 201303
  4. ZOFRAN [Concomitant]

REACTIONS (7)
  - Malaise [Unknown]
  - Somnolence [Unknown]
  - Gastrointestinal disorder [Unknown]
  - Pharyngeal oedema [Unknown]
  - Sensation of foreign body [Unknown]
  - Adverse event [Unknown]
  - Nausea [Unknown]
